FAERS Safety Report 23046984 (Version 2)
Quarter: 2023Q4

REPORT INFORMATION
  Report Type: Spontaneous
  Country: US (occurrence: US)
  Receive Date: 20231009
  Receipt Date: 20231026
  Transmission Date: 20240110
  Serious: Yes (Hospitalization)
  Sender: FDA-Public Use
  Company Number: US-Stemline Therapeutics, Inc.-2023ST003446

PATIENT
  Age: 45 Year
  Sex: Female

DRUGS (1)
  1. ORSERDU [Suspect]
     Active Substance: ELACESTRANT
     Indication: Product used for unknown indication
     Dosage: 345MG ONCE DAILY.
     Route: 048
     Dates: start: 20230801

REACTIONS (4)
  - Febrile nonhaemolytic transfusion reaction [Unknown]
  - Product dose omission issue [Unknown]
  - Drug ineffective [Unknown]
  - Fatigue [Unknown]
